FAERS Safety Report 8054435-9 (Version None)
Quarter: 2012Q1

REPORT INFORMATION
  Report Type: 
  Country: None (occurrence: None)
  Receive Date: 20120118
  Receipt Date: 20120110
  Transmission Date: 20120608
  Serious: Yes (Hospitalization, Disabling, Other)
  Sender: FDA-Public Use
  Company Number: BE-ASTRAZENECA-2012SE02248

PATIENT
  Age: 30837 Day
  Sex: Male

DRUGS (5)
  1. VIMOVO [Suspect]
     Indication: ARTHROPATHY
     Dosage: 500 MG/20 MG
     Route: 048
     Dates: start: 20111201, end: 20111208
  2. COVERSYL PLUS [Concomitant]
     Indication: HYPERTENSION
     Dosage: 4 MG / 1.25 MG
     Route: 048
  3. ASAFLOW [Concomitant]
     Indication: CORONARY ARTERY BYPASS
     Route: 048
  4. SIMVASTATIN [Concomitant]
     Indication: BLOOD CHOLESTEROL ABNORMAL
     Route: 048
  5. CALCIUM SANDOZ [Concomitant]
     Indication: OSTEOPOROSIS
     Route: 048

REACTIONS (1)
  - RENAL FAILURE ACUTE [None]
